FAERS Safety Report 5462684-9 (Version None)
Quarter: 2007Q3

REPORT INFORMATION
  Report Type: 
  Country: None (occurrence: None)
  Receive Date: 20070920
  Receipt Date: 20070916
  Transmission Date: 20080115
  Serious: Yes (Death)
  Sender: FDA-Public Use
  Company Number: IL-NOVOPROD-267527

PATIENT

DRUGS (4)
  1. NOVOSEVEN [Suspect]
     Indication: HAEMORRHAGE
     Dosage: 1.2 MG, SINGLE
     Route: 042
     Dates: start: 20070913, end: 20070913
  2. NOVOSEVEN [Suspect]
     Dosage: 2.4 MG, SINGLE
     Route: 042
     Dates: start: 20070913, end: 20070913
  3. NOVOSEVEN [Suspect]
     Dosage: 1.2 MG, SINGLE
     Route: 042
     Dates: start: 20070914, end: 20070914
  4. HEXAKAPRON [Concomitant]

REACTIONS (1)
  - HAEMORRHAGE [None]
